FAERS Safety Report 9348229 (Version 1)
Quarter: 2013Q2

REPORT INFORMATION
  Report Type: Spontaneous
  Country: GB (occurrence: GB)
  Receive Date: 20130614
  Receipt Date: 20130614
  Transmission Date: 20140414
  Serious: Yes (Hospitalization)
  Sender: FDA-Public Use
  Company Number: GB-AMGEN-GBRSP2013041335

PATIENT
  Sex: Female

DRUGS (1)
  1. XGEVA [Suspect]
     Indication: METASTASES TO BONE
     Dosage: UNK
     Dates: start: 20130418

REACTIONS (5)
  - Sepsis [Unknown]
  - Tremor [Unknown]
  - Hypocalcaemia [Recovered/Resolved]
  - Malaise [Unknown]
  - Diarrhoea [Unknown]
